FAERS Safety Report 5482275-3 (Version None)
Quarter: 2007Q4

REPORT INFORMATION
  Report Type: 
  Country: None (occurrence: None)
  Receive Date: 20071011
  Receipt Date: 20071001
  Transmission Date: 20080405
  Serious: Yes (Hospitalization)
  Sender: FDA-Public Use
  Company Number: US-JNJFOC-20071000937

PATIENT
  Sex: Female

DRUGS (3)
  1. FENTANYL TRANSDERMAL SYSTEM [Suspect]
     Route: 062
  2. FENTANYL TRANSDERMAL SYSTEM [Suspect]
     Dosage: 2 X 100 UG/HR
     Route: 062
  3. FENTANYL TRANSDERMAL SYSTEM [Suspect]
     Indication: PAIN
     Dosage: 2 X 100UG/HR + 75 UG/HR
     Route: 062

REACTIONS (5)
  - DRUG WITHDRAWAL SYNDROME [None]
  - FALL [None]
  - HEAD INJURY [None]
  - INCORRECT DRUG ADMINISTRATION DURATION [None]
  - UPPER LIMB FRACTURE [None]
